FAERS Safety Report 24171899 (Version 1)
Quarter: 2024Q3

REPORT INFORMATION
  Report Type: Spontaneous
  Country: GB (occurrence: GB)
  Receive Date: 20240805
  Receipt Date: 20240805
  Transmission Date: 20241016
  Serious: Yes (Other)
  Sender: NOVO NORDISK
  Company Number: None

PATIENT
  Age: 82 Year

DRUGS (10)
  1. OMEPRAZOLE [Concomitant]
     Active Substance: OMEPRAZOLE
     Dosage: 20 MG, QD
     Route: 048
  2. NIFEDIPINE [Concomitant]
     Active Substance: NIFEDIPINE
     Dosage: 10 MG, QD
     Route: 048
  3. ALBUTEROL [Concomitant]
     Active Substance: ALBUTEROL
     Dosage: 100 ?G (ONE OR TWO DOSES UP TO FOUR TIMES A DAY)
     Route: 055
  4. BECLOMETHASONE\FORMOTEROL [Concomitant]
     Active Substance: BECLOMETHASONE\FORMOTEROL
     Dosage: 100/6MCG ONE DOSE DAILY, WITH AN ADDITIONAL TWO DOSES AS REQUIRED
     Route: 055
  5. LEVOTHYROXINE SODIUM [Concomitant]
     Active Substance: LEVOTHYROXINE SODIUM
     Dosage: 25 ?G, QD (EACH MORNING)
     Route: 048
  6. LEVOTHYROXINE SODIUM [Concomitant]
     Active Substance: LEVOTHYROXINE SODIUM
     Route: 048
  7. CETYLPYRIDINIUM CHLORIDE [Concomitant]
     Active Substance: CETYLPYRIDINIUM CHLORIDE
     Dosage: UNK
     Route: 002
  8. CALCIUM CARBONATE\CHOLECALCIFEROL [Concomitant]
     Active Substance: CALCIUM CARBONATE\CHOLECALCIFEROL
     Dosage: 400 IU, QD
     Route: 048
  9. VAGIFEM [Suspect]
     Active Substance: ESTRADIOL
     Indication: Product used for unknown indication
     Dosage: 10 ?G (USES TWICE WEEKLY ON THURS/SUN)
     Route: 067
  10. AMOXICILLIN [Concomitant]
     Active Substance: AMOXICILLIN
     Dosage: 500 MG, TID (IN 8 HOURS)
     Route: 048

REACTIONS (1)
  - Ischaemic limb pain [Unknown]
